FAERS Safety Report 17914001 (Version 1)
Quarter: 2020Q2

REPORT INFORMATION
  Report Type: Spontaneous
  Country: FR (occurrence: FR)
  Receive Date: 20200619
  Receipt Date: 20200619
  Transmission Date: 20200714
  Serious: Yes (Other)
  Sender: FDA-Public Use
  Company Number: FR-UCBSA-2020024221

PATIENT
  Age: 18 Year
  Sex: Female
  Weight: 63 kg

DRUGS (1)
  1. BRIVIACT [Suspect]
     Active Substance: BRIVARACETAM
     Indication: EPILEPSY
     Dosage: UNK
     Route: 048
     Dates: start: 202003

REACTIONS (1)
  - Condition aggravated [Not Recovered/Not Resolved]

NARRATIVE: CASE EVENT DATE: 202003
